FAERS Safety Report 17727039 (Version 2)
Quarter: 2020Q3

REPORT INFORMATION
  Report Type: Spontaneous
  Country: NL (occurrence: NL)
  Receive Date: 20200430
  Receipt Date: 20200703
  Transmission Date: 20201102
  Serious: Yes (Hospitalization, Other)
  Sender: FDA-Public Use
  Company Number: NL-PFIZER INC-2020173746

PATIENT
  Age: 54 Year
  Sex: Female

DRUGS (9)
  1. ETALPHA [Concomitant]
     Active Substance: ALFACALCIDOL
     Dosage: 0.25 UG, 1X/DAY
     Route: 048
  2. PLAVIX [Concomitant]
     Active Substance: CLOPIDOGREL BISULFATE
     Dosage: 75 MG, 1X/DAY
     Route: 048
  3. PRIMPERAN [Concomitant]
     Active Substance: METOCLOPRAMIDE HYDROCHLORIDE
     Dosage: 30 MG, 1X/DAY
     Route: 048
  4. PANTOZOL [Suspect]
     Active Substance: PANTOPRAZOLE SODIUM
     Dosage: 40 MG, 1X/DAY
     Route: 048
     Dates: start: 20010802, end: 20010806
  5. FERROFUMARAAT [Concomitant]
     Dosage: 600 MG, 1X/DAY
     Route: 048
  6. LACTULOSE. [Concomitant]
     Active Substance: LACTULOSE
     Dosage: 45 ML, 1X/DAY
     Route: 048
  7. EPREX [Concomitant]
     Active Substance: ERYTHROPOIETIN
     Dosage: 800 INTERNATIONAL UNIT, 1/WEEK
     Route: 058
  8. CALCIUMCARBONAT [Concomitant]
     Dosage: 1500 MG, 1X/DAY
     Route: 048
  9. ACTRAPID [Concomitant]
     Active Substance: INSULIN HUMAN
     Dosage: UNK
     Route: 058

REACTIONS (5)
  - Rash pustular [Recovered/Resolved]
  - Leukocytosis [Unknown]
  - Diabetes mellitus [Unknown]
  - Acute generalised exanthematous pustulosis [Recovered/Resolved]
  - Diabetes mellitus inadequate control [Unknown]

NARRATIVE: CASE EVENT DATE: 20010805
